FAERS Safety Report 8251238-7 (Version None)
Quarter: 2012Q2

REPORT INFORMATION
  Report Type: 
  Country: None (occurrence: None)
  Receive Date: 20120402
  Receipt Date: 20120329
  Transmission Date: 20120825
  Serious: Yes (Other)
  Sender: FDA-Public Use
  Company Number: US-PFIZER INC-2012081024

PATIENT
  Sex: Female

DRUGS (2)
  1. ADVIL PM [Suspect]
     Indication: PAIN
     Dosage: ONCE AT NIGHT
     Route: 048
     Dates: start: 20120327, end: 20120327
  2. ADVIL PM [Suspect]
     Indication: SLEEP DISORDER

REACTIONS (2)
  - FOREIGN BODY [None]
  - CHOKING [None]
